FAERS Safety Report 4867871-6 (Version None)
Quarter: 2005Q4

REPORT INFORMATION
  Report Type: 
  Country: None (occurrence: None)
  Receive Date: 20051228
  Receipt Date: 20050919
  Transmission Date: 20060501
  Serious: Yes (Congenital Anomaly, Other)
  Sender: FDA-Public Use
  Company Number: GB-ABBOTT-05P-167-0311352-00

PATIENT
  Sex: Male

DRUGS (2)
  1. VALPROATE SODIUM [Suspect]
     Indication: DRUG EXPOSURE DURING PREGNANCY
  2. CARBAMAZEPINE [Suspect]
     Indication: DRUG EXPOSURE DURING PREGNANCY

REACTIONS (21)
  - AGGRESSION [None]
  - ASPERGER'S DISORDER [None]
  - ASTIGMATISM [None]
  - AUTISM SPECTRUM DISORDER [None]
  - BALANCE DISORDER [None]
  - CONGENITAL ORAL MALFORMATION [None]
  - COORDINATION ABNORMAL [None]
  - DEVELOPMENTAL DELAY [None]
  - DISTURBANCE IN ATTENTION [None]
  - FACIAL DYSMORPHISM [None]
  - FEEDING DISORDER NEONATAL [None]
  - FOETAL VALPROATE SYNDROME [None]
  - HYPERMETROPIA [None]
  - JAUNDICE [None]
  - MICROGNATHIA [None]
  - NIPPLE DISORDER [None]
  - NOSE DEFORMITY [None]
  - PETIT MAL EPILEPSY [None]
  - PROGNATHISM [None]
  - SPEECH DISORDER [None]
  - TACHYPNOEA [None]
